FAERS Safety Report 4860043-0 (Version None)
Quarter: 2005Q4

REPORT INFORMATION
  Report Type: 
  Country: None (occurrence: None)
  Receive Date: 20051215
  Receipt Date: 20051205
  Transmission Date: 20060501
  Serious: Yes (Hospitalization, Other)
  Sender: FDA-Public Use
  Company Number: CO-2005-026140

PATIENT
  Age: 36 Year
  Sex: Female
  Weight: 74 kg

DRUGS (1)
  1. MIRENA [Suspect]
     Indication: MENORRHAGIA
     Dosage: 20 UG/DAY, CONT, INTRA-UTERINE
     Route: 016
     Dates: start: 20051024, end: 20051101

REACTIONS (9)
  - ARTHRITIS [None]
  - CONDITION AGGRAVATED [None]
  - ENDOMETRIAL HYPERPLASIA [None]
  - ERYTHEMA [None]
  - GENERALISED OEDEMA [None]
  - PAIN [None]
  - UTERINE LEIOMYOMA [None]
  - VAGINAL HAEMORRHAGE [None]
  - VASCULITIS [None]
